FAERS Safety Report 8383493 (Version 3)
Quarter: 2015Q1

REPORT INFORMATION
  Report Type: Report from Study
  Country: US (occurrence: US)
  Receive Date: 20120130
  Receipt Date: 20150302
  Transmission Date: 20150721
  Serious: Yes (Death, Other)
  Sender: FDA-Public Use
  Company Number: US-ROCHE-1034092

PATIENT
  Age: 43 Year
  Sex: Female

DRUGS (21)
  1. FLAGYL [Concomitant]
     Active Substance: METRONIDAZOLE\METRONIDAZOLE HYDROCHLORIDE
  2. AVASTIN [Suspect]
     Active Substance: BEVACIZUMAB
     Route: 042
  3. ALOXI [Concomitant]
     Active Substance: PALONOSETRON HYDROCHLORIDE
     Route: 065
  4. CARBOPLATIN. [Concomitant]
     Active Substance: CARBOPLATIN
     Route: 042
  5. DEXAMETHASONE SODIUM PHOSPHATE. [Concomitant]
     Active Substance: DEXAMETHASONE SODIUM PHOSPHATE
     Route: 042
  6. AVASTIN [Suspect]
     Active Substance: BEVACIZUMAB
     Route: 042
  7. DECADRON [Concomitant]
     Active Substance: DEXAMETHASONE
  8. AROMASIN [Concomitant]
     Active Substance: EXEMESTANE
     Route: 048
  9. ATROPINE SULFATE. [Concomitant]
     Active Substance: ATROPINE SULFATE
     Route: 065
  10. FASLODEX [Concomitant]
     Active Substance: FULVESTRANT
     Route: 065
  11. AVASTIN [Suspect]
     Active Substance: BEVACIZUMAB
     Indication: BREAST CANCER FEMALE
     Dosage: 15/OCT/2007, 26/NOV/2007, 18/DEC/2007, 03/JAN/2008
     Route: 042
     Dates: start: 200607
  12. AVASTIN [Suspect]
     Active Substance: BEVACIZUMAB
     Route: 042
     Dates: start: 20070102
  13. GEMCITABINE [Concomitant]
     Active Substance: GEMCITABINE\GEMCITABINE HYDROCHLORIDE
  14. ASPIRIN. [Concomitant]
     Active Substance: ASPIRIN
  15. GRANISETRON [Concomitant]
     Active Substance: GRANISETRON
     Dosage: AS DIRECTED
     Route: 065
  16. DIPHENHYDRAMINE HYDROCHLORIDE. [Concomitant]
     Active Substance: DIPHENHYDRAMINE HYDROCHLORIDE
     Route: 042
  17. DEXAMETHASONE SODIUM PHOSPHATE. [Concomitant]
     Active Substance: DEXAMETHASONE SODIUM PHOSPHATE
     Route: 042
  18. DIPHENHYDRAMINE HYDROCHLORIDE. [Concomitant]
     Active Substance: DIPHENHYDRAMINE HYDROCHLORIDE
     Route: 011
  19. IRINOTECAN [Concomitant]
     Active Substance: IRINOTECAN
  20. NAPROSYN [Suspect]
     Active Substance: NAPROXEN
     Indication: PRODUCT USED FOR UNKNOWN INDICATION
     Route: 048
  21. CARBOPLATIN. [Concomitant]
     Active Substance: CARBOPLATIN
     Route: 042

REACTIONS (32)
  - Metastases to liver [Unknown]
  - Fatigue [Unknown]
  - Clostridium difficile infection [Recovered/Resolved]
  - Headache [Unknown]
  - Insomnia [Unknown]
  - Hypoaesthesia [Unknown]
  - Abdominal pain lower [Unknown]
  - Liver disorder [Unknown]
  - Vomiting [Unknown]
  - Wheezing [Unknown]
  - Ill-defined disorder [Unknown]
  - Pleural effusion [Unknown]
  - Pain [Unknown]
  - Peripheral swelling [Recovering/Resolving]
  - Dyspnoea [Recovering/Resolving]
  - Skin lesion [Recovering/Resolving]
  - Hypersensitivity [Unknown]
  - Death [Fatal]
  - Muscle spasms [Unknown]
  - Paraesthesia [Unknown]
  - Pericardial effusion [Unknown]
  - Nausea [Unknown]
  - Pneumonia [Unknown]
  - Metastases to bone [Unknown]
  - Cytopenia [Unknown]
  - Cough [Unknown]
  - Oedema peripheral [Recovering/Resolving]
  - Neutropenia [Unknown]
  - Haemorrhage [Unknown]
  - Sleep disorder [Unknown]
  - Paranasal sinus discomfort [Unknown]
  - Oedema genital [Unknown]

NARRATIVE: CASE EVENT DATE: 200701
